FAERS Safety Report 9464081 (Version 8)
Quarter: 2014Q2

REPORT INFORMATION
  Report Type: Report from Study
  Country: US (occurrence: US)
  Receive Date: 20130819
  Receipt Date: 20140401
  Transmission Date: 20141212
  Serious: Yes (Hospitalization)
  Sender: FDA-Public Use
  Company Number: US-SANOFI-AVENTIS-2013SA074537

PATIENT
  Age: 56 Year
  Sex: Female
  Weight: 85 kg

DRUGS (10)
  1. AUBAGIO [Suspect]
     Indication: MULTIPLE SCLEROSIS
     Route: 048
     Dates: start: 20130626
  2. AUBAGIO [Suspect]
     Indication: MULTIPLE SCLEROSIS
     Route: 048
  3. AUBAGIO [Suspect]
     Indication: MULTIPLE SCLEROSIS
     Route: 048
     Dates: start: 20131207
  4. PERCOCET [Concomitant]
     Indication: PAIN
     Dosage: DOSE: 7.5-500 MG
     Route: 048
  5. VALIUM [Concomitant]
     Route: 048
  6. OMEPRAZOLE [Concomitant]
     Indication: GASTROOESOPHAGEAL REFLUX DISEASE
     Dates: start: 2005
  7. DIAZEPAM [Concomitant]
     Indication: MUSCLE SPASMS
     Dates: start: 2002
  8. HYDROCODONE [Concomitant]
     Indication: PAIN
     Dates: start: 2010
  9. PROVIGIL [Concomitant]
     Indication: FATIGUE
  10. NORTRIPTYLINE [Concomitant]
     Indication: INSOMNIA

REACTIONS (17)
  - Balance disorder [Unknown]
  - Speech disorder [Unknown]
  - Burning sensation [Not Recovered/Not Resolved]
  - Vertigo [Unknown]
  - Decreased appetite [Unknown]
  - Pneumonia [Unknown]
  - Pyrexia [Unknown]
  - Depression [Unknown]
  - Fatigue [Not Recovered/Not Resolved]
  - Intervertebral disc injury [Unknown]
  - Skin irritation [Not Recovered/Not Resolved]
  - Cough [Unknown]
  - Weight decreased [Unknown]
  - Stress [Unknown]
  - Diarrhoea [Not Recovered/Not Resolved]
  - Nausea [Unknown]
  - Back pain [Unknown]
